FAERS Safety Report 23364102 (Version 1)
Quarter: 2024Q1

REPORT INFORMATION
  Report Type: Report from Study
  Country: BR (occurrence: BR)
  Receive Date: 20240104
  Receipt Date: 20240104
  Transmission Date: 20240410
  Serious: Yes (Hospitalization, Other)
  Sender: FDA-Public Use
  Company Number: BR-TAKEDA-2024TUS000686

PATIENT
  Sex: Male

DRUGS (1)
  1. HEMO-8R [Suspect]
     Active Substance: ANTIHEMOPHILIC FACTOR, HUMAN RECOMBINANT
     Indication: Factor VIII deficiency
     Dosage: 500 INTERNATIONAL UNIT
     Route: 042

REACTIONS (2)
  - Muscle haemorrhage [Recovered/Resolved]
  - Poor venous access [Unknown]

NARRATIVE: CASE EVENT DATE: 20231220
